FAERS Safety Report 4309751-0 (Version None)
Quarter: 2004Q1

REPORT INFORMATION
  Report Type: 
  Country: None (occurrence: None)
  Receive Date: 20040301
  Receipt Date: 20040219
  Transmission Date: 20041129
  Serious: Yes (Hospitalization, Other)
  Sender: FDA-Public Use
  Company Number: 2004011059

PATIENT
  Sex: Male

DRUGS (11)
  1. TIKOSYN [Suspect]
     Indication: ATRIAL FIBRILLATION
     Dosage: 500 MCG (BID), ORAL
     Route: 048
     Dates: start: 20030301
  2. METOPROLOL (METOPROLOL) [Concomitant]
  3. RAMIPRIL [Concomitant]
  4. GLIMEPIRIDE [Concomitant]
  5. FENOFIBRATE [Concomitant]
  6. WARFARIN SODIUM [Concomitant]
  7. TAMSULOSIN (TAMSULOSIN) [Concomitant]
  8. FOLIC ACID [Concomitant]
  9. VACCINIUM MACROCARPON (VACCINIUM MACROCARPON) [Concomitant]
  10. FAMOTIDINE [Concomitant]
  11. FLUOXETINE HCL [Concomitant]

REACTIONS (3)
  - ATRIAL FIBRILLATION [None]
  - DRUG INEFFECTIVE [None]
  - PROSTATE INFECTION [None]
